FAERS Safety Report 23247144 (Version 2)
Quarter: 2023Q4

REPORT INFORMATION
  Report Type: Report from Study
  Country: US (occurrence: US)
  Receive Date: 20231130
  Receipt Date: 20231214
  Transmission Date: 20240110
  Serious: Yes (Hospitalization)
  Sender: FDA-Public Use
  Company Number: US-Korea IPSEN-2023-23356

PATIENT
  Age: 86 Year
  Sex: Female
  Weight: 68.94 kg

DRUGS (25)
  1. TAZVERIK [Suspect]
     Active Substance: TAZEMETOSTAT HYDROBROMIDE
     Indication: Follicular lymphoma stage I
     Dosage: 800 MG TWICE DAILY
     Route: 048
     Dates: start: 202309
  2. TAZVERIK [Suspect]
     Active Substance: TAZEMETOSTAT HYDROBROMIDE
     Dosage: 800 MG TWICE DAILY
     Route: 048
     Dates: start: 20231008
  3. ALBUTEROL [Concomitant]
     Active Substance: ALBUTEROL
  4. ALLOPURINOL [Concomitant]
     Active Substance: ALLOPURINOL
  5. CALCITRIOL [Concomitant]
     Active Substance: CALCITRIOL
  6. PROBIOTICS NOS [Concomitant]
     Active Substance: PROBIOTICS NOS
  7. FUROSEMIDE [Concomitant]
     Active Substance: FUROSEMIDE
  8. HYOSCYAMINE SULFATE [Concomitant]
     Active Substance: HYOSCYAMINE SULFATE
  9. LEVOTHYROXINE SODIUM [Concomitant]
     Active Substance: LEVOTHYROXINE SODIUM
  10. LIDOCAINE\PRILOCAINE [Concomitant]
     Active Substance: LIDOCAINE\PRILOCAINE
  11. LOVASTATIN [Concomitant]
     Active Substance: LOVASTATIN
  12. MEGESTROL [Concomitant]
     Active Substance: MEGESTROL
  13. OMEPRAZOLE [Concomitant]
     Active Substance: OMEPRAZOLE
  14. ONDANSETRON [Concomitant]
     Active Substance: ONDANSETRON
  15. POTTASIUM CHLORIDE ER [Concomitant]
  16. PROCHLORPERAZINE MALEATE [Concomitant]
     Active Substance: PROCHLORPERAZINE MALEATE
  17. VITAMIN D3 [Concomitant]
     Active Substance: CHOLECALCIFEROL
  18. XARELTO [Concomitant]
     Active Substance: RIVAROXABAN
  19. ANORO ELLIPTA [Concomitant]
     Active Substance: UMECLIDINIUM BROMIDE\VILANTEROL TRIFENATATE
  20. FIBER LAXATIVE [Concomitant]
  21. BENZONANTE [Concomitant]
  22. CEFUROXIME AXETIL [Concomitant]
     Active Substance: CEFUROXIME AXETIL
  23. MONTELUKAST SODIUM [Concomitant]
     Active Substance: MONTELUKAST SODIUM
  24. PRILOCAINE [Concomitant]
     Active Substance: PRILOCAINE
  25. FIBER LAXATIVE [Concomitant]

REACTIONS (4)
  - Anaemia [Not Recovered/Not Resolved]
  - Cough [Recovering/Resolving]
  - Lung opacity [Unknown]
  - Lung opacity [Unknown]
